FAERS Safety Report 16052167 (Version 1)
Quarter: 2019Q1

REPORT INFORMATION
  Report Type: Spontaneous
  Country: US (occurrence: US)
  Receive Date: 20190308
  Receipt Date: 20190308
  Transmission Date: 20190418
  Serious: Yes (Hospitalization)
  Sender: FDA-Public Use
  Company Number: US-UCBSA-2019009514

PATIENT
  Age: 22 Year
  Sex: Male

DRUGS (1)
  1. LACOSAMIDE. [Suspect]
     Active Substance: LACOSAMIDE
     Indication: EPILEPSY
     Dosage: UNK

REACTIONS (6)
  - Disorientation [Unknown]
  - Aura [Unknown]
  - Confusional state [Unknown]
  - Seizure [Unknown]
  - Hospitalisation [Unknown]
  - Drug ineffective [Unknown]
